FAERS Safety Report 21771998 (Version 2)
Quarter: 2023Q1

REPORT INFORMATION
  Report Type: Spontaneous
  Country: US (occurrence: US)
  Receive Date: 20221223
  Receipt Date: 20230104
  Transmission Date: 20230418
  Serious: Yes (Other)
  Sender: FDA-Public Use
  Company Number: US-SUN PHARMACEUTICAL INDUSTRIES LTD-2022R1-370249

PATIENT
  Age: 2 Month
  Sex: Female
  Weight: 6 kg

DRUGS (2)
  1. DEXMEDETOMIDINE [Suspect]
     Active Substance: DEXMEDETOMIDINE
     Indication: Sedation
     Dosage: 0.1 UG/KG/H EVERY 8 HOURS
     Route: 065
  2. KETAMINE [Suspect]
     Active Substance: KETAMINE
     Indication: Sedation
     Dosage: 5 UG/KG/MIN EVERY 8 HOURS
     Route: 065

REACTIONS (1)
  - Withdrawal syndrome [Unknown]
